FAERS Safety Report 7611257-8 (Version None)
Quarter: 2011Q3

REPORT INFORMATION
  Report Type: 
  Country: None (occurrence: None)
  Receive Date: 20110715
  Receipt Date: 20110712
  Transmission Date: 20111222
  Serious: Yes (Other)
  Sender: FDA-Public Use
  Company Number: US-PFIZER INC-2011157924

PATIENT
  Age: 76 Year
  Sex: Female
  Weight: 72.562 kg

DRUGS (4)
  1. CALCIUM [Concomitant]
     Indication: BLOOD CALCIUM DECREASED
     Dosage: 500 MG, DAILY
  2. TYLENOL-500 [Suspect]
     Indication: BACK PAIN
     Dosage: UNK
  3. VITAMIN D [Concomitant]
     Indication: BLOOD CALCIUM DECREASED
     Dosage: 1.25 MG, WEEKLY
  4. IBUPROFEN (ADVIL) [Suspect]
     Indication: BACK PAIN
     Dosage: UNK
     Dates: start: 20110703

REACTIONS (6)
  - DYSPNOEA [None]
  - DYSPHAGIA [None]
  - NASAL OEDEMA [None]
  - PHARYNGEAL OEDEMA [None]
  - DRUG INEFFECTIVE [None]
  - OEDEMA PERIPHERAL [None]
